FAERS Safety Report 20338342 (Version 2)
Quarter: 2022Q1

REPORT INFORMATION
  Report Type: Spontaneous
  Country: DE (occurrence: DE)
  Receive Date: 20220115
  Receipt Date: 20220223
  Transmission Date: 20220423
  Serious: Yes (Other)
  Sender: FDA-Public Use
  Company Number: DE-NOVARTISPH-NVSC2022DE005727

PATIENT
  Age: 59 Year
  Sex: Female
  Weight: 75 kg

DRUGS (3)
  1. ESTRADIOL [Suspect]
     Active Substance: ESTRADIOL
     Indication: Menopause
     Dosage: UNK(1 STROKE)
     Route: 065
  2. UTROGESTAN [Suspect]
     Active Substance: PROGESTERONE
     Indication: Menopause
     Dosage: UNK
     Route: 065
  3. UTROGESTAN [Suspect]
     Active Substance: PROGESTERONE
     Route: 065

REACTIONS (8)
  - Mental impairment [Unknown]
  - Peripheral coldness [Unknown]
  - Tension [Unknown]
  - Feeling hot [Unknown]
  - Anxiety [Unknown]
  - Therapeutic product effect decreased [Unknown]
  - Aphasia [Unknown]
  - Dysphagia [Unknown]
